FAERS Safety Report 24960497 (Version 1)
Quarter: 2025Q1

REPORT INFORMATION
  Report Type: Report from Study
  Country: US (occurrence: US)
  Receive Date: 20250212
  Receipt Date: 20250212
  Transmission Date: 20250408
  Serious: Yes (Death, Other)
  Sender: JAZZ
  Company Number: US-JAZZ PHARMACEUTICALS-2025-US-003724

PATIENT
  Age: 10 Year
  Sex: Male

DRUGS (5)
  1. EPIDIOLEX [Suspect]
     Active Substance: CANNABIDIOL
     Indication: Epilepsy
     Dosage: 1.6 MILLILITER, BID
     Route: 048
     Dates: start: 20220411, end: 20250206
  2. CLOBAZAM [Concomitant]
     Active Substance: CLOBAZAM
     Indication: Product used for unknown indication
  3. MELATONIN [Concomitant]
     Active Substance: MELATONIN
     Indication: Product used for unknown indication
  4. VALPROIC ACID [Concomitant]
     Active Substance: VALPROIC ACID
     Indication: Product used for unknown indication
  5. VALTOCO [Concomitant]
     Active Substance: DIAZEPAM
     Indication: Product used for unknown indication
     Route: 045

REACTIONS (1)
  - Death [Fatal]

NARRATIVE: CASE EVENT DATE: 20250206
